FAERS Safety Report 19156612 (Version 2)
Quarter: 2023Q4

REPORT INFORMATION
  Report Type: Report from Study
  Country: DE (occurrence: DE)
  Receive Date: 20210420
  Receipt Date: 20231231
  Transmission Date: 20240110
  Serious: Yes (Other)
  Sender: FDA-Public Use
  Company Number: DE-ARISTO PHARMA-CODE-GABA-MORP-PREG202103081

PATIENT
  Age: 34 Year
  Sex: Male

DRUGS (6)
  1. GABAPENTIN [Suspect]
     Active Substance: GABAPENTIN
     Indication: Product used for unknown indication
     Dosage: UNK
     Route: 065
  2. PREGABALIN [Suspect]
     Active Substance: PREGABALIN
     Indication: Product used for unknown indication
     Dosage: UNK
     Route: 065
  3. COCAINE [Suspect]
     Active Substance: COCAINE
     Indication: Product used for unknown indication
     Dosage: UNK
     Route: 065
  4. CODEINE [Suspect]
     Active Substance: CODEINE
     Indication: Product used for unknown indication
     Dosage: UNK
     Route: 065
  5. MORPHINE [Suspect]
     Active Substance: MORPHINE
     Indication: Product used for unknown indication
     Dosage: UNK
     Route: 065
  6. BENZOYLECGONINE [Suspect]
     Active Substance: BENZOYLECGONINE
     Indication: Product used for unknown indication
     Dosage: UNK
     Route: 065

REACTIONS (4)
  - Miosis [Unknown]
  - Drug abuse [Unknown]
  - Drug dependence [Unknown]
  - Drug interaction [Unknown]
